FAERS Safety Report 8498828 (Version 3)
Quarter: 2013Q2

REPORT INFORMATION
  Report Type: Spontaneous
  Country: US (occurrence: None)
  Receive Date: 20120322
  Receipt Date: 20120621
  Transmission Date: 20140414
  Serious: Yes (Hospitalization)
  Sender: FDA-Public Use
  Company Number: UTC-014565

PATIENT
  Age: 43 Year
  Sex: Male
  Weight: 70.5 kg

DRUGS (1)
  1. TYVASO [Suspect]
     Indication: PULMONARY ARTERIAL HYPERTENSION
     Dosage: 72 MCG (24 MCG, 3 IN 1 D), INHALATION
     Route: 055
     Dates: start: 20100914

REACTIONS (3)
  - DYSPNOEA [None]
  - PULMONARY ARTERIAL HYPERTENSION [None]
  - RENAL FAILURE [None]
